FAERS Safety Report 10390603 (Version 1)
Quarter: 2014Q3

REPORT INFORMATION
  Report Type: Spontaneous
  Country: GB (occurrence: None)
  Receive Date: 20140814
  Receipt Date: 20140814
  Transmission Date: 20150326
  Serious: Yes (Other)
  Sender: FDA-Public Use
  Company Number: AUR-APL-2014-08507

PATIENT
  Age: 70 Year
  Sex: Female
  Weight: 57 kg

DRUGS (4)
  1. CLOPIDOGREL [Suspect]
     Active Substance: CLOPIDOGREL BISULFATE
     Indication: PROPHYLAXIS
     Route: 048
     Dates: start: 20140519, end: 20140528
  2. LEVOTHYROXINE [Concomitant]
     Active Substance: LEVOTHYROXINE
  3. ATENOLOL. [Concomitant]
     Active Substance: ATENOLOL
  4. OMEPRAZOLE. [Concomitant]
     Active Substance: OMEPRAZOLE

REACTIONS (4)
  - Diarrhoea [None]
  - Asthenia [None]
  - Malaise [None]
  - Heart rate decreased [None]

NARRATIVE: CASE EVENT DATE: 20140521
